FAERS Safety Report 24824477 (Version 1)
Quarter: 2025Q1

REPORT INFORMATION
  Report Type: Spontaneous
  Country: FR (occurrence: FR)
  Receive Date: 20250109
  Receipt Date: 20250109
  Transmission Date: 20250409
  Serious: Yes (Death, Hospitalization, Other)
  Sender: ACCORD
  Company Number: FR-EMA-DD-20241204-7482661-104753

PATIENT
  Age: 32 Year
  Sex: Male

DRUGS (4)
  1. AZACITIDINE [Suspect]
     Active Substance: AZACITIDINE
     Indication: Myelodysplastic syndrome
  2. HYDROXYUREA [Suspect]
     Active Substance: HYDROXYUREA
     Indication: Sickle cell disease
  3. PREDNISONE [Suspect]
     Active Substance: PREDNISONE
     Indication: Myelodysplastic syndrome
  4. PREDNISONE [Suspect]
     Active Substance: PREDNISONE
     Indication: Myelodysplastic syndrome
     Dosage: GRADUAL REDUCTION

REACTIONS (4)
  - Disease recurrence [Fatal]
  - Drug ineffective [Fatal]
  - Graft versus host disease [Unknown]
  - Condition aggravated [Unknown]
